FAERS Safety Report 22290801 (Version 1)
Quarter: 2023Q2

REPORT INFORMATION
  Report Type: Spontaneous
  Country: IT (occurrence: IT)
  Receive Date: 20230506
  Receipt Date: 20230506
  Transmission Date: 20230721
  Serious: Yes (Other)
  Sender: FDA-Public Use
  Company Number: IT-MINISAL02-920665

PATIENT
  Age: 78 Year
  Sex: Male

DRUGS (8)
  1. ONDANSETRON [Interacting]
     Active Substance: ONDANSETRON
     Indication: Product used for unknown indication
     Dosage: 4 MILLIGRAM
     Route: 042
     Dates: start: 20221010, end: 20230207
  2. MVASI [Suspect]
     Active Substance: BEVACIZUMAB-AWWB
     Indication: Rectal adenocarcinoma
     Dosage: 390 MILLIGRAM
     Route: 042
     Dates: start: 20221010, end: 20230207
  3. FLUOROURACIL [Suspect]
     Active Substance: FLUOROURACIL
     Indication: Rectal adenocarcinoma
     Dosage: 700 MILLIGRAM (PER VIA ENDOVENOSA:- 700 MG INIEZIONE IN BOLO - 4000 MG INFUSIONE MEDIANTE ELASTOMERO
     Route: 042
     Dates: start: 20221010, end: 20230207
  4. FLUOROURACIL [Suspect]
     Active Substance: FLUOROURACIL
     Dosage: 4000 MILLIGRAM (PER VIA ENDOVENOSA:- 700 MG INIEZIONE IN BOLO - 4000 MG INFUSIONE MEDIANTE ELASTOMER
     Route: 042
     Dates: start: 20221010, end: 20230207
  5. LEUCOVORIN [Interacting]
     Active Substance: LEUCOVORIN
     Indication: Product used for unknown indication
     Dosage: 350 MILLIGRAM
     Route: 042
     Dates: start: 20221010, end: 20230207
  6. CHLORPHENIRAMINE MALEATE [Interacting]
     Active Substance: CHLORPHENIRAMINE MALEATE
     Indication: Product used for unknown indication
     Dosage: 10 MILLIGRAM
     Route: 042
     Dates: start: 20221010, end: 20230207
  7. OXALIPLATIN [Suspect]
     Active Substance: OXALIPLATIN
     Indication: Rectal adenocarcinoma
     Dosage: 140 MILLIGRAM
     Route: 042
     Dates: start: 20221010, end: 20230207
  8. DEXAMETHASONE [Interacting]
     Active Substance: DEXAMETHASONE
     Indication: Product used for unknown indication
     Dosage: 8 MILLIGRAM
     Route: 042
     Dates: start: 20221010, end: 20230207

REACTIONS (1)
  - Thrombocytopenia [Recovered/Resolved]

NARRATIVE: CASE EVENT DATE: 20230221
